FAERS Safety Report 9624881 (Version 3)
Quarter: 2013Q4

REPORT INFORMATION
  Report Type: Report from Study
  Country: FI (occurrence: FI)
  Receive Date: 20131016
  Receipt Date: 20131218
  Transmission Date: 20140711
  Serious: Yes (Hospitalization)
  Sender: FDA-Public Use
  Company Number: FI-PFIZER INC-2013292863

PATIENT
  Age: 72 Year
  Sex: Female
  Weight: 70 kg

DRUGS (9)
  1. SUTENT [Suspect]
     Indication: RENAL CANCER METASTATIC
     Dosage: 50 MG, 4 WEEKS TREATMENT/2 WEEKS OFF
     Route: 048
     Dates: start: 20130506, end: 20130602
  2. SUTENT [Suspect]
     Dosage: 50 MG, 4 WEEKS TREATMENT/2 WEEKS OFF
     Dates: start: 20130625, end: 20130715
  3. SUTENT [Suspect]
     Dosage: 37.5 MG, 4 WEEKS TREATMENT/2 WEEKS OFF
     Dates: start: 20130821, end: 20130917
  4. ATENBLOCK [Concomitant]
     Indication: PALPITATIONS
     Dosage: UNK
     Route: 048
  5. ATENBLOCK [Concomitant]
     Indication: HYPERTENSION
  6. JANUVIA [Concomitant]
     Indication: DIABETES MELLITUS
     Dosage: UNK
     Route: 048
  7. NEXIUM [Concomitant]
     Indication: DIAPHRAGMATIC HERNIA
     Dosage: UNK
     Route: 048
  8. OPTIPAR [Concomitant]
     Indication: ANXIETY
     Dosage: UNK
     Route: 048
  9. ALPROX [Concomitant]
     Indication: ANXIETY
     Route: 048

REACTIONS (1)
  - Neuritis [Not Recovered/Not Resolved]
